FAERS Safety Report 5889517-0 (Version None)
Quarter: 2008Q3

REPORT INFORMATION
  Report Type: 
  Country: None (occurrence: None)
  Receive Date: 20080912
  Receipt Date: 20080912
  Transmission Date: 20090109
  Serious: Yes (Hospitalization)
  Sender: FDA-Public Use
  Company Number: None

PATIENT
  Age: 61 Year
  Sex: Male
  Weight: 68.1756 kg

DRUGS (1)
  1. AVASTIN [Suspect]
     Indication: PANCREATIC CARCINOMA METASTATIC
     Dosage: 10MG/KGIV, D1+15 OF CYCL
     Dates: start: 20080806, end: 20080820

REACTIONS (4)
  - ANOREXIA [None]
  - DISEASE PROGRESSION [None]
  - IMPAIRED GASTRIC EMPTYING [None]
  - OBSTRUCTION GASTRIC [None]
